FAERS Safety Report 8313829-4 (Version None)
Quarter: 2012Q2

REPORT INFORMATION
  Report Type: 
  Country: None (occurrence: None)
  Receive Date: 20120426
  Receipt Date: 20120417
  Transmission Date: 20120825
  Serious: Yes (Other)
  Sender: FDA-Public Use
  Company Number: CA-JNJFOC-20120408289

PATIENT
  Sex: Male
  Weight: 143 kg

DRUGS (1)
  1. REMICADE [Suspect]
     Indication: PSORIASIS
     Route: 042
     Dates: start: 20110209

REACTIONS (3)
  - EAR INFECTION [None]
  - TYMPANIC MEMBRANE PERFORATION [None]
  - DEAFNESS UNILATERAL [None]
